FAERS Safety Report 8344291-3 (Version None)
Quarter: 2012Q2

REPORT INFORMATION
  Report Type: 
  Country: None (occurrence: None)
  Receive Date: 20120402
  Receipt Date: 20120209
  Transmission Date: 20120825
  Serious: Yes (Other)
  Sender: FDA-Public Use
  Company Number: 320757USA

PATIENT
  Age: 63 Year
  Sex: Female

DRUGS (1)
  1. VENLAFAXINE [Suspect]
     Dosage: (75 MG)

REACTIONS (6)
  - TREMOR [None]
  - DEPRESSION [None]
  - ANXIETY [None]
  - DRUG INEFFECTIVE [None]
  - HEART RATE INCREASED [None]
  - SUICIDAL IDEATION [None]
